FAERS Safety Report 8133585-2 (Version None)
Quarter: 2012Q1

REPORT INFORMATION
  Report Type: 
  Country: None (occurrence: None)
  Receive Date: 20120213
  Receipt Date: 20120131
  Transmission Date: 20120608
  Serious: Yes (Other)
  Sender: FDA-Public Use
  Company Number: BE-ELI_LILLY_AND_COMPANY-BE201202000486

PATIENT
  Sex: Male

DRUGS (1)
  1. OLANZAPINE [Suspect]
     Indication: SCHIZOPHRENIA
     Dosage: 405 MG, UNKNOWN
     Route: 030
     Dates: start: 20111110

REACTIONS (6)
  - FEELING ABNORMAL [None]
  - ILEUS PARALYTIC [None]
  - PNEUMONIA ASPIRATION [None]
  - ALKALOSIS [None]
  - TACHYCARDIA [None]
  - VOMITING [None]
